FAERS Safety Report 15482194 (Version 1)
Quarter: 2018Q4

REPORT INFORMATION
  Report Type: Spontaneous
  Country: TW (occurrence: TW)
  Receive Date: 20181010
  Receipt Date: 20181010
  Transmission Date: 20190205
  Serious: Yes (Death, Other)
  Sender: FDA-Public Use
  Company Number: TW-009507513-1810TWN002556

PATIENT
  Age: 50 Year
  Sex: Male
  Weight: 60 kg

DRUGS (2)
  1. KEYTRUDA [Suspect]
     Active Substance: PEMBROLIZUMAB
     Dosage: 150 MG (2 MG/KG, CYCLE 1 TO 2)
     Dates: start: 20160928, end: 20160928
  2. KEYTRUDA [Suspect]
     Active Substance: PEMBROLIZUMAB
     Indication: HYPOPHARYNGEAL CANCER
     Dosage: 150 MG (2 MG/KG, CYCLE 1 TO 2)
     Dates: start: 20160907, end: 20160907

REACTIONS (3)
  - Off label use [Unknown]
  - Haemorrhage [Unknown]
  - Carotid bruit [Fatal]

NARRATIVE: CASE EVENT DATE: 20160907
